FAERS Safety Report 6652024-1 (Version None)
Quarter: 2010Q1

REPORT INFORMATION
  Report Type: 
  Country: None (occurrence: None)
  Receive Date: 20100325
  Receipt Date: 20100315
  Transmission Date: 20100710
  Serious: Yes (Hospitalization)
  Sender: FDA-Public Use
  Company Number: FR-WYE-H14215410

PATIENT
  Age: 54 Year
  Sex: Male

DRUGS (4)
  1. CORDARONE [Suspect]
     Indication: ARRHYTHMIA
     Dosage: UNSPECIFIED DOSE TAKEN DAILY
     Route: 048
     Dates: start: 20091119, end: 20091211
  2. TENORMIN [Concomitant]
     Dosage: DOSE UNSPECIFIED
  3. PARIET [Concomitant]
     Dosage: DOSE UNSPECIFIED
  4. PREVISCAN [Suspect]
     Indication: ARRHYTHMIA
     Dosage: UNSPECIFIED DOSE TAKEN DAILY
     Route: 048
     Dates: start: 20091119, end: 20091209

REACTIONS (1)
  - DRUG RASH WITH EOSINOPHILIA AND SYSTEMIC SYMPTOMS [None]
